FAERS Safety Report 13933127 (Version 2)
Quarter: 2018Q3

REPORT INFORMATION
  Report Type: Report from Study
  Country: JP (occurrence: JP)
  Receive Date: 20170904
  Receipt Date: 20180912
  Transmission Date: 20181010
  Serious: Yes (Hospitalization)
  Sender: FDA-Public Use
  Company Number: JP-JNJFOC-20170829077

PATIENT
  Age: 57 Year
  Sex: Female
  Weight: 65.1 kg

DRUGS (8)
  1. YONDELIS [Suspect]
     Active Substance: TRABECTEDIN
     Indication: MALIGNANT FIBROUS HISTIOCYTOMA METASTATIC
     Dosage: CYCLE 1
     Route: 042
     Dates: start: 20161116
  2. YONDELIS [Suspect]
     Active Substance: TRABECTEDIN
     Indication: MALIGNANT FIBROUS HISTIOCYTOMA METASTATIC
     Dosage: CYCLE 3
     Route: 042
     Dates: start: 20170106
  3. YONDELIS [Suspect]
     Active Substance: TRABECTEDIN
     Indication: MALIGNANT FIBROUS HISTIOCYTOMA METASTATIC
     Dosage: CYCLE 2
     Route: 042
     Dates: start: 20161207
  4. DEXAMETHASONE. [Concomitant]
     Active Substance: DEXAMETHASONE
     Route: 065
     Dates: start: 20161116
  5. YONDELIS [Suspect]
     Active Substance: TRABECTEDIN
     Indication: MALIGNANT FIBROUS HISTIOCYTOMA METASTATIC
     Dosage: CYCLE 5
     Route: 042
     Dates: start: 20170217
  6. YONDELIS [Suspect]
     Active Substance: TRABECTEDIN
     Indication: MALIGNANT FIBROUS HISTIOCYTOMA METASTATIC
     Dosage: CYCLE 6
     Route: 042
     Dates: start: 20170309
  7. YONDELIS [Suspect]
     Active Substance: TRABECTEDIN
     Indication: MALIGNANT FIBROUS HISTIOCYTOMA METASTATIC
     Dosage: CYCLE 7
     Route: 042
     Dates: start: 20170406
  8. YONDELIS [Suspect]
     Active Substance: TRABECTEDIN
     Indication: MALIGNANT FIBROUS HISTIOCYTOMA METASTATIC
     Dosage: CYCLE 4
     Route: 042
     Dates: start: 20170127

REACTIONS (5)
  - Aspartate aminotransferase increased [Recovered/Resolved]
  - Alanine aminotransferase increased [Recovered/Resolved]
  - Device related infection [Recovered/Resolved]
  - Blood alkaline phosphatase increased [Not Recovered/Not Resolved]
  - Neutrophil count decreased [Recovering/Resolving]

NARRATIVE: CASE EVENT DATE: 20161126
